FAERS Safety Report 26126708 (Version 1)
Quarter: 2025Q4

REPORT INFORMATION
  Report Type: Report from Study
  Country: AU (occurrence: None)
  Receive Date: 20251205
  Receipt Date: 20251205
  Transmission Date: 20260117
  Serious: Yes (Other)
  Sender: UCB
  Company Number: AU-UCBSA-2025076657

PATIENT
  Age: 66 Year

DRUGS (1)
  1. CERTOLIZUMAB PEGOL [Suspect]
     Active Substance: CERTOLIZUMAB PEGOL
     Indication: Rheumatoid arthritis
     Dosage: 200 MILLIGRAM, EV 2 WEEKS(QOW)

REACTIONS (2)
  - Rheumatoid arthritis [Recovering/Resolving]
  - Eczema [Recovering/Resolving]
